FAERS Safety Report 10231519 (Version 2)
Quarter: 2014Q2

REPORT INFORMATION
  Report Type: Spontaneous
  Country: US (occurrence: US)
  Receive Date: 20140611
  Receipt Date: 20140611
  Transmission Date: 20141212
  Serious: No
  Sender: FDA-Public Use
  Company Number: US-MYLANLABS-2014S1005584

PATIENT
  Sex: Male

DRUGS (1)
  1. VALACYCLOVIR TABLETS [Suspect]
     Indication: HERPES ZOSTER
     Dosage: DOSE UNIT:1
     Dates: start: 20140213, end: 20140223

REACTIONS (3)
  - Drug ineffective [Not Recovered/Not Resolved]
  - Herpes zoster [Not Recovered/Not Resolved]
  - Eye pain [Not Recovered/Not Resolved]
